FAERS Safety Report 9927855 (Version 1)
Quarter: 2014Q1

REPORT INFORMATION
  Report Type: Spontaneous
  Country: BE (occurrence: None)
  Receive Date: 20140221
  Receipt Date: 20140221
  Transmission Date: 20141002
  Serious: Yes (Hospitalization)
  Sender: FDA-Public Use
  Company Number: 2014-000338

PATIENT
  Sex: Female

DRUGS (2)
  1. MESALAZINE [Suspect]
     Indication: CROHN^S DISEASE
     Route: 048
  2. CORTICO STEROIDS  NOS (CORTICOSTEROIDS NOS) [Concomitant]

REACTIONS (11)
  - Methaemoglobinaemia [None]
  - Continuous haemodiafiltration [None]
  - Blood potassium increased [None]
  - Blood sodium decreased [None]
  - Blood phosphorus increased [None]
  - Blood creatinine increased [None]
  - Blood urea increased [None]
  - Blood magnesium decreased [None]
  - Blood bicarbonate decreased [None]
  - Blood pH decreased [None]
  - PCO2 decreased [None]
